FAERS Safety Report 8957318 (Version 1)
Quarter: 2012Q4

REPORT INFORMATION
  Report Type: Report from Study
  Country: SI (occurrence: SI)
  Receive Date: 20121211
  Receipt Date: 20121211
  Transmission Date: 20130627
  Serious: Yes (Other)
  Sender: FDA-Public Use
  Company Number: SI-ROCHE-1163721

PATIENT
  Age: 42 Year
  Sex: Male
  Weight: 85 kg

DRUGS (3)
  1. BEVACIZUMAB [Suspect]
     Indication: COLON CANCER METASTATIC
     Route: 042
     Dates: start: 20120124, end: 20120705
  2. CAPECITABINE [Suspect]
     Indication: COLON CANCER METASTATIC
     Route: 048
  3. IRINOTECAN [Concomitant]
     Indication: COLON CANCER METASTATIC
     Route: 042
     Dates: start: 20120124, end: 20120705

REACTIONS (2)
  - Pulmonary artery thrombosis [Recovered/Resolved]
  - Portal vein thrombosis [Recovered/Resolved]
